FAERS Safety Report 16056976 (Version 5)
Quarter: 2019Q2

REPORT INFORMATION
  Report Type: Spontaneous
  Country: IT (occurrence: IT)
  Receive Date: 20190311
  Receipt Date: 20190606
  Transmission Date: 20190711
  Serious: Yes (Other)
  Sender: FDA-Public Use
  Company Number: IT-AMGEN-ITANI2019035575

PATIENT
  Age: 52 Year
  Sex: Female
  Weight: 71 kg

DRUGS (6)
  1. FASLODEX [Suspect]
     Active Substance: FULVESTRANT
     Indication: BREAST CANCER FEMALE
     Dosage: 500 MILLIGRAM, QMO
     Route: 030
     Dates: start: 20180109
  2. XGEVA [Suspect]
     Active Substance: DENOSUMAB
     Indication: BREAST CANCER
     Dosage: UNK, QMO
     Route: 065
     Dates: start: 20171222
  3. FASLODEX [Suspect]
     Active Substance: FULVESTRANT
     Dosage: 250 MILLIGRAM, QMO
     Route: 030
  4. PALBOCICLIB [Suspect]
     Active Substance: PALBOCICLIB
     Dosage: 5700 MILLIGRAM, QD
     Route: 048
     Dates: start: 20180109
  5. FASLODEX [Suspect]
     Active Substance: FULVESTRANT
     Dosage: 1000 MILLIGRAM, QMO
     Route: 030
  6. PALBOCICLIB [Suspect]
     Active Substance: PALBOCICLIB
     Indication: BREAST CANCER FEMALE
     Dosage: 100 MG, DAILY
     Route: 048
     Dates: start: 20180109

REACTIONS (1)
  - Neutropenia [Recovered/Resolved]

NARRATIVE: CASE EVENT DATE: 20180306
